FAERS Safety Report 4676627-9 (Version None)
Quarter: 2005Q2

REPORT INFORMATION
  Report Type: 
  Country: None (occurrence: None)
  Receive Date: 20050527
  Receipt Date: 20050505
  Transmission Date: 20051028
  Serious: Yes (Hospitalization)
  Sender: FDA-Public Use
  Company Number: CH-ROCHE-404016

PATIENT
  Age: 76 Year
  Sex: Female

DRUGS (7)
  1. CAPECITABINE [Suspect]
     Indication: BREAST CANCER
     Route: 048
     Dates: start: 20050310
  2. IXABEPILONE [Suspect]
     Indication: BREAST CANCER
     Route: 042
     Dates: start: 20050310, end: 20050310
  3. PREDNISOLONE [Concomitant]
     Dates: start: 20050223
  4. NEXIUM [Concomitant]
     Dates: start: 20050310
  5. DIPYRONE TAB [Concomitant]
     Dates: start: 20050126
  6. TRAMADOL HCL [Concomitant]
     Dates: start: 20000615
  7. PASPERTIN [Concomitant]
     Dates: start: 20050307

REACTIONS (2)
  - DYSURIA [None]
  - VOMITING [None]
